FAERS Safety Report 7661367-4 (Version None)
Quarter: 2011Q3

REPORT INFORMATION
  Report Type: 
  Country: None (occurrence: None)
  Receive Date: 20110805
  Receipt Date: 20101025
  Transmission Date: 20111222
  Serious: No
  Sender: FDA-Public Use
  Company Number: US-ABBOTT-10P-163-0673580-00

PATIENT
  Sex: Female
  Weight: 65.83 kg

DRUGS (10)
  1. LUNESTA [Concomitant]
     Indication: PRODUCT USED FOR UNKNOWN INDICATION
  2. ASPIRIN [Suspect]
     Indication: DRUG THERAPY
     Route: 048
  3. SINGULAIR [Concomitant]
     Indication: HYPERSENSITIVITY
  4. NIASPAN [Suspect]
     Route: 048
     Dates: start: 20101023
  5. ADVAIR DISKUS 100/50 [Concomitant]
     Indication: PRODUCT USED FOR UNKNOWN INDICATION
  6. PERCOCET [Concomitant]
     Indication: PRODUCT USED FOR UNKNOWN INDICATION
  7. SYNTHROID [Concomitant]
     Indication: HYPOTHYROIDISM
  8. NIASPAN [Suspect]
     Indication: BLOOD CHOLESTEROL INCREASED
     Dosage: AT BEDTIME
     Dates: start: 20100924, end: 20101022
  9. XYCEL [Concomitant]
     Indication: HYPERSENSITIVITY
  10. VITAMIN TAB [Concomitant]
     Indication: VITAMIN SUPPLEMENTATION

REACTIONS (5)
  - INCORRECT DOSE ADMINISTERED [None]
  - ABDOMINAL PAIN [None]
  - FLUSHING [None]
  - FLATULENCE [None]
  - TINNITUS [None]
